FAERS Safety Report 24562581 (Version 1)
Quarter: 2024Q4

REPORT INFORMATION
  Report Type: Spontaneous
  Country: ES (occurrence: ES)
  Receive Date: 20241029
  Receipt Date: 20241029
  Transmission Date: 20250114
  Serious: Yes (Other)
  Sender: BAUSCH AND LOMB
  Company Number: ES-BAUSCH-BL-2024-016020

PATIENT
  Age: 81 Year
  Sex: Female

DRUGS (2)
  1. IMIQUIMOD [Suspect]
     Active Substance: IMIQUIMOD
     Indication: Product used for unknown indication
     Route: 061
     Dates: start: 202409, end: 20240927
  2. IMIQUIMOD [Suspect]
     Active Substance: IMIQUIMOD
     Dosage: EVERY OTHER DAY (QOD)
     Route: 065
     Dates: start: 202409, end: 20240927

REACTIONS (4)
  - Bacterial infection [Recovered/Resolved]
  - Application site burn [Recovered/Resolved]
  - Inappropriate schedule of product administration [Unknown]
  - Wrong dose [Unknown]
